FAERS Safety Report 9286241 (Version 1)
Quarter: 2013Q2

REPORT INFORMATION
  Report Type: Report from Study
  Country: BR (occurrence: BR)
  Receive Date: 20130513
  Receipt Date: 20130513
  Transmission Date: 20140414
  Serious: Yes (Other)
  Sender: FDA-Public Use
  Company Number: PHHY2013BR020517

PATIENT
  Age: 16 Year
  Sex: Male
  Weight: 45 kg

DRUGS (7)
  1. EXJADE [Suspect]
     Indication: SERUM FERRITIN INCREASED
     Dosage: 250 MG DAILY
     Route: 048
  2. EXJADE [Suspect]
     Dosage: 125 MG DAILY
     Route: 048
  3. EXJADE [Suspect]
     Dosage: 500 MG BID
     Route: 048
  4. BENZETACIL [Concomitant]
     Indication: PROPHYLAXIS
     Dosage: 1 DF, EVERY 21 DAYS
     Route: 030
  5. HYDREA [Concomitant]
     Indication: PROPHYLAXIS
     Dosage: 1 DF, DAILY
     Route: 048
  6. PEN-VE-ORAL [Concomitant]
     Indication: PROPHYLAXIS
     Dosage: 4000 UKN, DAILY
     Route: 048
  7. FOLIC ACID [Concomitant]
     Indication: RED BLOOD CELL COUNT
     Dosage: 1 DF, UNK
     Route: 048

REACTIONS (3)
  - Osteonecrosis [Recovering/Resolving]
  - Serum ferritin increased [Not Recovered/Not Resolved]
  - Arthralgia [Unknown]
